FAERS Safety Report 17605769 (Version 1)
Quarter: 2020Q1

REPORT INFORMATION
  Report Type: Spontaneous
  Country: US (occurrence: US)
  Receive Date: 20200331
  Receipt Date: 20200331
  Transmission Date: 20200409
  Serious: Yes (Other)
  Sender: FDA-Public Use
  Company Number: None

PATIENT
  Age: 42 Year
  Sex: Female
  Weight: 65.25 kg

DRUGS (3)
  1. OZEMPIC [Concomitant]
     Active Substance: SEMAGLUTIDE
  2. DIFLUCAN [Concomitant]
     Active Substance: FLUCONAZOLE
  3. NYSTATIN. [Suspect]
     Active Substance: NYSTATIN
     Indication: FUNGAL INFECTION
     Dosage: ?          QUANTITY:6 ML;?
     Route: 048
     Dates: start: 20200330, end: 20200331

REACTIONS (7)
  - Product substitution issue [None]
  - Vomiting [None]
  - Product taste abnormal [None]
  - Product odour abnormal [None]
  - Cardiovascular symptom [None]
  - Therapeutic response decreased [None]
  - Neurological symptom [None]

NARRATIVE: CASE EVENT DATE: 20200331
